FAERS Safety Report 20558115 (Version 1)
Quarter: 2022Q1

REPORT INFORMATION
  Report Type: Spontaneous
  Country: CN (occurrence: CN)
  Receive Date: 20220307
  Receipt Date: 20220307
  Transmission Date: 20220423
  Serious: Yes (Other)
  Sender: FDA-Public Use
  Company Number: CN-ASTELLAS-2022US008008

PATIENT
  Sex: Female

DRUGS (3)
  1. PROGRAF [Suspect]
     Active Substance: TACROLIMUS
     Indication: Antisynthetase syndrome
     Dosage: 1 MG, ONCE DAILY (AT THE BEGINNING, USED ONE 1MG CAPSULE A DAY)
     Route: 048
     Dates: start: 202202
  2. PROGRAF [Suspect]
     Active Substance: TACROLIMUS
     Dosage: 1 MG, TWICE DAILY (STARTED TO TAKE ONE IN THE MORNING AND ONE IN THE EVENING)
     Route: 048
     Dates: start: 20220228
  3. CYCLOSPORINE [Concomitant]
     Active Substance: CYCLOSPORINE
     Indication: Antisynthetase syndrome
     Dosage: UNK UNK, UNKNOWN FREQ.
     Route: 065
     Dates: start: 202112, end: 202202

REACTIONS (15)
  - Congenital pneumonia [Unknown]
  - Hemiparesis [Unknown]
  - Panic disorder [Unknown]
  - Vision blurred [Unknown]
  - Eye swelling [Unknown]
  - Sensation of foreign body [Unknown]
  - Dysphonia [Unknown]
  - Hypoaesthesia [Unknown]
  - Hypoaesthesia oral [Unknown]
  - Back pain [Unknown]
  - Blood glucose increased [Unknown]
  - Lipids increased [Unknown]
  - Pulmonary mass [Unknown]
  - Pulmonary fibrosis [Unknown]
  - Off label use [Unknown]
